FAERS Safety Report 5148240-0 (Version None)
Quarter: 2006Q4

REPORT INFORMATION
  Report Type: 
  Country: None (occurrence: None)
  Receive Date: 20061106
  Receipt Date: 20061023
  Transmission Date: 20070319
  Serious: Yes (Life-Threatening, Hospitalization)
  Sender: FDA-Public Use
  Company Number: 2005-01126

PATIENT
  Age: 65 Year
  Sex: Female

DRUGS (2)
  1. VELCADE [Suspect]
     Indication: MULTIPLE MYELOMA
     Dosage: 1.30 MG/M2, UNK; INTRAVENOUS
     Route: 042
     Dates: start: 20040630, end: 20040823
  2. DEXAMETHASONE TAB [Suspect]
     Indication: MULTIPLE MYELOMA
     Dosage: 40.00 MG, UNK, ORAL
     Route: 048
     Dates: start: 20040630, end: 20040816

REACTIONS (7)
  - INFLUENZA LIKE ILLNESS [None]
  - NODULE [None]
  - PRODUCTIVE COUGH [None]
  - PYREXIA [None]
  - RALES [None]
  - RESPIRATORY TRACT INFECTION FUNGAL [None]
  - RHINITIS [None]
